FAERS Safety Report 18890809 (Version 2)
Quarter: 2021Q1

REPORT INFORMATION
  Report Type: Spontaneous
  Country: CR (occurrence: CR)
  Receive Date: 20210215
  Receipt Date: 20210328
  Transmission Date: 20210420
  Serious: Yes (Other)
  Sender: FDA-Public Use
  Company Number: CR-ROCHE-2769010

PATIENT
  Age: 33 Year
  Sex: Female

DRUGS (1)
  1. XOLAIR [Suspect]
     Active Substance: OMALIZUMAB
     Indication: PRODUCT USED FOR UNKNOWN INDICATION
     Route: 065
     Dates: start: 20210202

REACTIONS (4)
  - Abdominal pain [Unknown]
  - Epilepsy [Unknown]
  - Insomnia [Unknown]
  - Headache [Unknown]

NARRATIVE: CASE EVENT DATE: 20210203
